FAERS Safety Report 11431457 (Version 1)
Quarter: 2015Q3

REPORT INFORMATION
  Report Type: Report from Study
  Country: US (occurrence: US)
  Receive Date: 20150828
  Receipt Date: 20150828
  Transmission Date: 20151125
  Serious: Yes (Hospitalization)
  Sender: FDA-Public Use
  Company Number: US-ASTELLAS-2015US021699

PATIENT
  Sex: Female

DRUGS (11)
  1. PROMETHAZINE [Concomitant]
     Active Substance: PROMETHAZINE\PROMETHAZINE HYDROCHLORIDE
     Indication: PRODUCT USED FOR UNKNOWN INDICATION
     Dosage: UNK UNK, UNKNOWN FREQ.
     Route: 065
  2. GLUCOVANCE [Concomitant]
     Active Substance: GLYBURIDE\METFORMIN HYDROCHLORIDE
     Dosage: 5 MG, ONCE DAILY (IN THE MORNING)
     Route: 048
  3. LIPITOR [Concomitant]
     Active Substance: ATORVASTATIN CALCIUM
     Indication: PRODUCT USED FOR UNKNOWN INDICATION
     Route: 065
  4. ASPIRIN. [Concomitant]
     Active Substance: ASPIRIN
     Indication: PRODUCT USED FOR UNKNOWN INDICATION
     Route: 065
  5. ERLOTINIB [Suspect]
     Active Substance: ERLOTINIB
     Route: 048
  6. ZEBETA [Concomitant]
     Active Substance: BISOPROLOL FUMARATE
     Indication: PRODUCT USED FOR UNKNOWN INDICATION
     Route: 065
  7. ERLOTINIB [Suspect]
     Active Substance: ERLOTINIB
     Indication: MALIGNANT RESPIRATORY TRACT NEOPLASM
     Route: 048
     Dates: start: 200708
  8. ERLOTINIB [Suspect]
     Active Substance: ERLOTINIB
     Indication: LUNG NEOPLASM MALIGNANT
     Route: 048
  9. ERLOTINIB [Suspect]
     Active Substance: ERLOTINIB
     Route: 048
  10. GLUCOVANCE [Concomitant]
     Active Substance: GLYBURIDE\METFORMIN HYDROCHLORIDE
     Indication: PRODUCT USED FOR UNKNOWN INDICATION
     Dosage: ONE IN THE MORNING AND ONE IN THE EVENING
     Route: 048
  11. PLAVIX [Concomitant]
     Active Substance: CLOPIDOGREL BISULFATE
     Indication: PRODUCT USED FOR UNKNOWN INDICATION
     Route: 065

REACTIONS (23)
  - Fall [Unknown]
  - Confusional state [Unknown]
  - Nephrolithiasis [Unknown]
  - Lacrimation increased [Unknown]
  - Rash [Unknown]
  - Weight decreased [Unknown]
  - Diarrhoea [Unknown]
  - Cough [Unknown]
  - Nausea [Recovered/Resolved]
  - Emphysema [Unknown]
  - Loss of libido [Unknown]
  - Speech disorder [Unknown]
  - Pain [Unknown]
  - Fatigue [Unknown]
  - Dyspnoea [Unknown]
  - Arteriosclerosis [Unknown]
  - Dyspnoea exertional [Unknown]
  - Dry skin [Unknown]
  - Hypoglycaemia [Unknown]
  - Muscle spasms [Unknown]
  - Decreased appetite [Recovering/Resolving]
  - Rhinorrhoea [Unknown]
  - Asthenia [Unknown]
